FAERS Safety Report 8899965 (Version 1)
Quarter: 2012Q4

REPORT INFORMATION
  Report Type: 
  Country: US (occurrence: US)
  Receive Date: 20121108
  Receipt Date: 20121108
  Transmission Date: 20130627
  Serious: No
  Sender: FDA-Public Use
  Company Number: US-AMGEN-USASP2012031643

PATIENT
  Age: 74 Year
  Sex: Male
  Weight: 115.65 kg

DRUGS (6)
  1. ENBREL [Suspect]
     Indication: PRODUCT USED FOR UNKNOWN INDICATION
     Dosage: 50 mg, qwk
     Route: 058
  2. PREDNISONE [Concomitant]
     Dosage: 5 mg, UNK
  3. HYDROXYCHLOROQUINE [Concomitant]
     Dosage: 200 mg, UNK
  4. LOSARTAN POTASICO [Concomitant]
     Dosage: 25 mg, UNK
  5. METHOTREXATE [Concomitant]
     Dosage: 50 mg, UNK
  6. VITAMIN D /00107901/ [Concomitant]
     Dosage: 400 IU, UNK

REACTIONS (2)
  - Fatigue [Unknown]
  - Asthenia [Unknown]
